FAERS Safety Report 7360750-4 (Version None)
Quarter: 2011Q1

REPORT INFORMATION
  Report Type: 
  Country: None (occurrence: None)
  Receive Date: 20110318
  Receipt Date: 20080422
  Transmission Date: 20110831
  Serious: Yes (Hospitalization, Other)
  Sender: FDA-Public Use
  Company Number: US-BAYER-200826613NA

PATIENT
  Sex: Female
  Weight: 95.238 kg

DRUGS (16)
  1. INSULIN [Concomitant]
     Dosage: 8-16 UNITS
     Route: 058
     Dates: start: 20060117
  2. HEPARIN SODIUM [Concomitant]
     Dosage: 25000 U, UNK
     Route: 042
     Dates: start: 20060309, end: 20060309
  3. AMITRIPTYLINE HCL [Concomitant]
     Dosage: 50 MG, UNK
     Route: 048
     Dates: start: 20050129
  4. METOPROLOL SUCCINATE [Concomitant]
     Dosage: 100 MG, BID
     Route: 048
     Dates: start: 20060106
  5. LASIX [Concomitant]
     Dosage: 20MG/20MG
     Route: 042
     Dates: start: 20060309
  6. ACTOS [Concomitant]
     Dosage: 15 MG, UNK
     Route: 048
     Dates: start: 20050129
  7. HEPARIN SODIUM [Concomitant]
     Dosage: 10 U PRIME
     Dates: start: 20060309, end: 20060309
  8. PROTAMINE SULFATE [Concomitant]
     Dosage: 250 MG, UNK
     Route: 042
     Dates: start: 20060309
  9. MANNITOL [Concomitant]
     Dosage: 30 ML, UNK
     Dates: start: 20060308, end: 20060308
  10. MANNITOL [Concomitant]
     Dosage: 30ML/50ML PRIME
     Dates: start: 20060309, end: 20060309
  11. INSULIN [INSULIN] [Concomitant]
     Dosage: 4-8 UNITS
     Route: 058
     Dates: start: 20060117
  12. LASIX [Concomitant]
     Dosage: 20-40 MG/D
     Route: 048
     Dates: start: 20051216
  13. INSULIN [Concomitant]
     Dosage: 10 U, UNK
     Route: 042
  14. TRASYLOL [Suspect]
     Indication: CORONARY ARTERY BYPASS
     Dosage: 200 ML THEN INFUSION AT 50ML/HR
     Route: 042
     Dates: start: 20060309, end: 20060309
  15. ZOCOR [Concomitant]
     Dosage: 10 MG, UNK
     Route: 048
     Dates: start: 20050129
  16. FELODIPINE [Concomitant]
     Dosage: 10 MG, UNK
     Route: 048
     Dates: start: 20050129

REACTIONS (8)
  - UNEVALUABLE EVENT [None]
  - FEAR [None]
  - DEPRESSION [None]
  - ANHEDONIA [None]
  - INJURY [None]
  - RENAL FAILURE [None]
  - ANXIETY [None]
  - PAIN [None]
